FAERS Safety Report 6905603-8 (Version None)
Quarter: 2010Q3

REPORT INFORMATION
  Report Type: 
  Country: None (occurrence: None)
  Receive Date: 20100804
  Receipt Date: 20100729
  Transmission Date: 20110219
  Serious: Yes (Other)
  Sender: FDA-Public Use
  Company Number: PL-B.I. PHARMACEUTICALS,INC./RIDGEFIELD-2010-AP-00373AP

PATIENT
  Age: 75 Year
  Sex: Female

DRUGS (1)
  1. SPIRIVA [Suspect]
     Indication: CHRONIC OBSTRUCTIVE PULMONARY DISEASE
     Dosage: 18 MCG
     Route: 055
     Dates: start: 20100601, end: 20100708

REACTIONS (4)
  - CONSTIPATION [None]
  - DRY MOUTH [None]
  - OEDEMA [None]
  - URINARY RETENTION [None]
